FAERS Safety Report 5605590-9 (Version None)
Quarter: 2008Q1

REPORT INFORMATION
  Report Type: 
  Country: None (occurrence: None)
  Receive Date: 20080125
  Receipt Date: 20080125
  Transmission Date: 20080703
  Serious: Yes (Hospitalization)
  Sender: FDA-Public Use
  Company Number: None

PATIENT
  Age: 55 Year
  Sex: Male

DRUGS (2)
  1. ARIXTRA [Suspect]
     Indication: NEOPLASM MALIGNANT
     Dosage: 7.5 MG DAILY SQ
     Route: 058
  2. ARIXTRA [Suspect]
     Indication: THROMBOSIS
     Dosage: 7.5 MG DAILY SQ
     Route: 058

REACTIONS (3)
  - ANAEMIA [None]
  - PANCREATIC CARCINOMA [None]
  - THROMBOCYTOPENIA [None]
